FAERS Safety Report 14159064 (Version 2)
Quarter: 2018Q1

REPORT INFORMATION
  Report Type: Report from Study
  Country: US (occurrence: US)
  Receive Date: 20171103
  Receipt Date: 20180214
  Transmission Date: 20180508
  Serious: No
  Sender: FDA-Public Use
  Company Number: US-PUMA BIOTECHNOLOGY, LTD.-2017US013451

PATIENT

DRUGS (4)
  1. NERLYNX [Suspect]
     Active Substance: NERATINIB
     Dosage: 2-3 TABLETS, EVERY OTHER DAY
     Route: 048
     Dates: start: 201712, end: 201801
  2. NERLYNX [Suspect]
     Active Substance: NERATINIB
     Dosage: 3-4 TABLETS, EVERY OTHER DAY
     Route: 048
     Dates: start: 201801
  3. NERLYNX [Suspect]
     Active Substance: NERATINIB
     Dosage: 2-3 TABLETS, EVERY OTHER DAY
     Route: 048
     Dates: start: 20171104, end: 201711
  4. NERLYNX [Suspect]
     Active Substance: NERATINIB
     Indication: BREAST CANCER
     Dosage: 6 TABLETS, DAILY
     Route: 048
     Dates: start: 20171002, end: 20171003

REACTIONS (13)
  - Nausea [Unknown]
  - Abdominal pain [Recovered/Resolved]
  - Rash [Unknown]
  - Diarrhoea [Unknown]
  - Fatigue [Unknown]
  - Constipation [Unknown]
  - Vomiting [Recovered/Resolved]
  - Hot flush [Unknown]
  - Gastrooesophageal reflux disease [Unknown]
  - Paraesthesia [Unknown]
  - Saliva altered [Unknown]
  - Dyspepsia [Unknown]
  - Dysgeusia [Unknown]

NARRATIVE: CASE EVENT DATE: 20171002
